FAERS Safety Report 10339349 (Version 1)
Quarter: 2014Q3

REPORT INFORMATION
  Report Type: Spontaneous
  Country: US (occurrence: None)
  Receive Date: 20140723
  Receipt Date: 20140723
  Transmission Date: 20150326
  Serious: Yes (Hospitalization)
  Sender: FDA-Public Use
  Company Number: None

PATIENT
  Age: 65 Year
  Sex: Male
  Weight: 74.1 kg

DRUGS (14)
  1. TACROLIMUS. [Concomitant]
     Active Substance: TACROLIMUS
  2. SOFOSBUVIR [Suspect]
     Active Substance: SOFOSBUVIR
     Indication: HEPATITIS C
     Route: 048
     Dates: start: 20140417, end: 20140710
  3. SIMEPREVIR [Suspect]
     Active Substance: SIMEPREVIR
     Indication: HEPATITIS C
     Route: 048
     Dates: start: 20140417, end: 20140710
  4. COLACE [Concomitant]
     Active Substance: DOCUSATE SODIUM
  5. NORVASC [Concomitant]
     Active Substance: AMLODIPINE BESYLATE
  6. MAGNESIUM OXIDE. [Concomitant]
     Active Substance: MAGNESIUM OXIDE
  7. MYCOPHENOLIC ACID [Concomitant]
     Active Substance: MYCOPHENOLIC ACID
  8. PROGRAF [Concomitant]
     Active Substance: TACROLIMUS\TACROLIMUS ANHYDROUS
  9. CALTRATE [Concomitant]
     Active Substance: CALCIUM CARBONATE
  10. NEUPOGEN [Concomitant]
     Active Substance: FILGRASTIM
  11. METOPROLOL TARTATE [Concomitant]
     Active Substance: METOPROLOL TARTRATE
  12. NYSTATIN. [Concomitant]
     Active Substance: NYSTATIN
  13. PREDNISONE. [Concomitant]
     Active Substance: PREDNISONE
  14. PRENATAL MULTIVITAMIN [Concomitant]

REACTIONS (2)
  - Malaise [None]
  - Pneumonia [None]

NARRATIVE: CASE EVENT DATE: 20140617
